FAERS Safety Report 8416549-0 (Version None)
Quarter: 2012Q2

REPORT INFORMATION
  Report Type: 
  Country: None (occurrence: None)
  Receive Date: 20120606
  Receipt Date: 20120529
  Transmission Date: 20120825
  Serious: Yes (Other)
  Sender: FDA-Public Use
  Company Number: GB-VIIV HEALTHCARE LIMITED-B0805861A

PATIENT
  Age: 35 Year
  Sex: Female

DRUGS (5)
  1. AMPHOTERICIN B [Concomitant]
     Indication: MENINGITIS CRYPTOCOCCAL
     Route: 065
  2. LAMIVUDINE AND ZIDOVUDINE [Suspect]
     Indication: HIV INFECTION
     Route: 065
  3. FLUCYTOSINE [Concomitant]
     Indication: MENINGITIS CRYPTOCOCCAL
     Route: 065
  4. FLUCONAZOLE [Concomitant]
     Indication: MENINGITIS CRYPTOCOCCAL
     Route: 065
  5. EFAVIRENZ [Suspect]
     Indication: HIV INFECTION
     Route: 065

REACTIONS (14)
  - PYREXIA [None]
  - CRYPTOCOCCOSIS [None]
  - NIGHT SWEATS [None]
  - C-REACTIVE PROTEIN INCREASED [None]
  - HEADACHE [None]
  - IMMUNE RECONSTITUTION SYNDROME [None]
  - LUNG NEOPLASM [None]
  - DYSPHAGIA [None]
  - NODULE [None]
  - UVEITIS [None]
  - LETHARGY [None]
  - VISUAL ACUITY REDUCED [None]
  - CYTOMEGALOVIRUS CHORIORETINITIS [None]
  - LYMPHADENOPATHY [None]
